FAERS Safety Report 9494334 (Version 1)
Quarter: 2013Q3

REPORT INFORMATION
  Report Type: Spontaneous
  Country: US (occurrence: None)
  Receive Date: 20130828
  Receipt Date: 20130828
  Transmission Date: 20140515
  Serious: No
  Sender: FDA-Public Use
  Company Number: NXG-13-004

PATIENT
  Sex: Female

DRUGS (1)
  1. BUTALBITAL/ACETAMINOPHEN/CAFFEINE/CODEINE [Suspect]

REACTIONS (5)
  - Dizziness [None]
  - Tremor [None]
  - Hyperhidrosis [None]
  - Fear [None]
  - Fall [None]
